FAERS Safety Report 4369249-0 (Version None)
Quarter: 2004Q2

REPORT INFORMATION
  Report Type: 
  Country: None (occurrence: None)
  Receive Date: 20040603
  Receipt Date: 20040112
  Transmission Date: 20050107
  Serious: No
  Sender: FDA-Public Use
  Company Number: US-GLAXOSMITHKLINE-A0492922A

PATIENT
  Sex: Female

DRUGS (1)
  1. AUGMENTIN [Suspect]
     Indication: EYE INFECTION
     Route: 048

REACTIONS (3)
  - DYSPHAGIA [None]
  - FOREIGN BODY TRAUMA [None]
  - VOMITING [None]
